FAERS Safety Report 20062928 (Version 2)
Quarter: 2022Q1

REPORT INFORMATION
  Report Type: Spontaneous
  Country: US (occurrence: US)
  Receive Date: 20211112
  Receipt Date: 20220210
  Transmission Date: 20220423
  Serious: Yes (Other)
  Sender: FDA-Public Use
  Company Number: US-GLAXOSMITHKLINE-US2021GSK231589

PATIENT
  Sex: Female

DRUGS (8)
  1. ZANTAC [Suspect]
     Active Substance: RANITIDINE HYDROCHLORIDE
     Indication: Gastrooesophageal reflux disease
     Dosage: 150 MG, QD
     Route: 065
     Dates: start: 199601, end: 200512
  2. ZANTAC [Suspect]
     Active Substance: RANITIDINE HYDROCHLORIDE
     Indication: Hiatus hernia
     Dosage: 150 MG, QD
     Route: 065
     Dates: start: 1996, end: 200512
  3. ZANTAC [Suspect]
     Active Substance: RANITIDINE HYDROCHLORIDE
     Indication: Gastrooesophageal reflux disease
     Dosage: 150 MG, QD
     Route: 065
     Dates: start: 199601, end: 200512
  4. ZANTAC [Suspect]
     Active Substance: RANITIDINE HYDROCHLORIDE
     Indication: Hiatus hernia
     Dosage: 150 MG, QD
     Route: 065
     Dates: start: 1996, end: 200512
  5. RANITIDINE [Suspect]
     Active Substance: RANITIDINE
     Indication: Gastrooesophageal reflux disease
     Dosage: 150 MG, QD
     Route: 065
     Dates: start: 199701, end: 200512
  6. RANITIDINE [Suspect]
     Active Substance: RANITIDINE
     Indication: Hiatus hernia
     Dosage: 150 MG, QD
     Route: 065
     Dates: start: 1997, end: 200512
  7. RANITIDINE [Suspect]
     Active Substance: RANITIDINE
     Indication: Gastrooesophageal reflux disease
     Dosage: 150 MG, QD
     Route: 065
     Dates: start: 199701, end: 200512
  8. RANITIDINE [Suspect]
     Active Substance: RANITIDINE
     Indication: Hiatus hernia
     Dosage: 150 MG, QD
     Route: 065
     Dates: start: 1997, end: 200512

REACTIONS (1)
  - Breast cancer [Unknown]
